FAERS Safety Report 16353536 (Version 1)
Quarter: 2019Q2

REPORT INFORMATION
  Report Type: Report from Study
  Country: None (occurrence: HU)
  Receive Date: 20190524
  Receipt Date: 20190524
  Transmission Date: 20190711
  Serious: Yes (Other)
  Sender: FDA-Public Use
  Company Number: HU-ABBVIE-19S-076-2796031-00

PATIENT
  Age: 62 Year
  Sex: Male

DRUGS (3)
  1. FRONTIN [Concomitant]
     Active Substance: ALPRAZOLAM
     Indication: PRODUCT USED FOR UNKNOWN INDICATION
     Route: 048
     Dates: start: 2014
  2. MADOPAR [Concomitant]
     Active Substance: BENSERAZIDE HYDROCHLORIDE\LEVODOPA
     Indication: PRODUCT USED FOR UNKNOWN INDICATION
     Dosage: 100MG /25 MG
     Route: 048
  3. DUODOPA [Suspect]
     Active Substance: CARBIDOPA\LEVODOPA
     Indication: PARKINSON^S DISEASE
     Dosage: MORNING DOSE 8.5 ML; CONTINUOUS DOSE 3.6 ML/H;EXTRA DOSE 2.5 ML
     Route: 050
     Dates: start: 201402

REACTIONS (6)
  - Off label use [Unknown]
  - Device issue [Recovered/Resolved]
  - Incorrect route of product administration [Unknown]
  - Device dislocation [Unknown]
  - Device extrusion [Not Recovered/Not Resolved]
  - Device connection issue [Unknown]

NARRATIVE: CASE EVENT DATE: 201904
